FAERS Safety Report 10252708 (Version 1)
Quarter: 2014Q2

REPORT INFORMATION
  Report Type: Spontaneous
  Country: JP (occurrence: JP)
  Receive Date: 20140623
  Receipt Date: 20140623
  Transmission Date: 20141212
  Serious: Yes (Other)
  Sender: FDA-Public Use
  Company Number: JP-SA-2014SA081925

PATIENT
  Sex: 0

DRUGS (2)
  1. MYSLEE [Suspect]
     Indication: PRODUCT USED FOR UNKNOWN INDICATION
     Route: 048
  2. ROHYPNOL [Concomitant]

REACTIONS (3)
  - Shoplifting [Unknown]
  - Depressed level of consciousness [Unknown]
  - Intentional overdose [Unknown]
